FAERS Safety Report 5103240-1 (Version None)
Quarter: 2006Q3

REPORT INFORMATION
  Report Type: 
  Country: None (occurrence: None)
  Receive Date: 20060908
  Receipt Date: 20060825
  Transmission Date: 20061208
  Serious: Yes (Other)
  Sender: FDA-Public Use
  Company Number: SPVI-2006-00470

PATIENT
  Age: 34 Year
  Sex: Male

DRUGS (9)
  1. PENTASA [Suspect]
     Indication: COLITIS ULCERATIVE
     Dosage: 2250 DAILY ORAL
     Route: 048
     Dates: start: 20060401, end: 20060621
  2. CLARITHROMYCIN [Concomitant]
  3. CIMETIDINE [Concomitant]
  4. TEPRENONE [Concomitant]
  5. ETIZOLAM [Concomitant]
  6. TIPEPIDINE HIBENZATE [Concomitant]
  7. THEOPHYLLINE [Concomitant]
  8. MINOCYCLINE HYDROCHLORIDE [Concomitant]
  9. CEFPODOXIME PROXETIL [Concomitant]

REACTIONS (5)
  - CHEST X-RAY ABNORMAL [None]
  - EOSINOPHILIA [None]
  - LUNG DISORDER [None]
  - LYMPHOCYTE STIMULATION TEST POSITIVE [None]
  - PULMONARY EOSINOPHILIA [None]
